FAERS Safety Report 6445431-3 (Version None)
Quarter: 2009Q4

REPORT INFORMATION
  Report Type: 
  Country: None (occurrence: None)
  Receive Date: 20091118
  Receipt Date: 20091111
  Transmission Date: 20100525
  Serious: Yes (Other)
  Sender: FDA-Public Use
  Company Number: PHEH2008US08945

PATIENT
  Sex: Male

DRUGS (17)
  1. ELIDEL [Suspect]
     Indication: ECZEMA
     Dosage: UNK
     Route: 061
     Dates: start: 20020301
  2. PROTOPIC [Suspect]
     Indication: ECZEMA
     Dosage: UNK
     Route: 061
     Dates: start: 20020301
  3. ADRIAMYCIN PFS [Concomitant]
     Indication: HODGKIN'S DISEASE
     Dosage: UNK
  4. BLEOMYCIN SULFATE [Concomitant]
     Indication: HODGKIN'S DISEASE
     Dosage: UNK
  5. VINBLASTINE [Concomitant]
     Indication: HODGKIN'S DISEASE
     Dosage: UNK
  6. DACARBAZINE [Concomitant]
     Indication: HODGKIN'S DISEASE
     Dosage: UNK
  7. LOVAZA [Concomitant]
     Dosage: UNK
  8. MULTIPLE VITAMINS [Concomitant]
     Dosage: UNK
  9. ANTIBIOTICS [Concomitant]
     Dosage: UNK
  10. REGLAN [Concomitant]
     Dosage: UNK
  11. ZOFRAN [Concomitant]
     Dosage: UNK
  12. PREDNISONE [Concomitant]
     Dosage: 20 MG / 3.5 TABLETS DAILY
     Route: 048
     Dates: start: 20050101
  13. PANTOPRAZOLE SODIUM [Concomitant]
     Dosage: 40 MG / 1 TABLET EVERY 24 HOURS
     Route: 048
     Dates: start: 20050101
  14. ACETAMINOPHEN [Concomitant]
     Dosage: 325 MG / 1-2 TABLETS EVERY 4-6 HRS
     Route: 048
     Dates: start: 20050101
  15. LEVOFLOXACIN [Concomitant]
     Dosage: 500 MG / 1 TABLET EVERY 24 HOURS
     Dates: start: 20050101
  16. METOCLOPRAMIDE HYDROCHLORIDE [Concomitant]
     Dosage: 10 MG / 1 TABLET QID
     Dates: start: 20050101
  17. DECADRON                                /CAN/ [Concomitant]
     Dosage: UNK

REACTIONS (18)
  - ANXIETY [None]
  - DIVERTICULUM [None]
  - EAR PAIN [None]
  - ECZEMA [None]
  - GYNAECOMASTIA [None]
  - HODGKIN'S DISEASE [None]
  - HYPERSENSITIVITY [None]
  - HYPERTENSION [None]
  - INTERVERTEBRAL DISC PROTRUSION [None]
  - LYMPHADENOPATHY [None]
  - MARROW HYPERPLASIA [None]
  - PULMONARY TOXICITY [None]
  - RED BLOOD CELL SEDIMENTATION RATE INCREASED [None]
  - RHINITIS SEASONAL [None]
  - SINUS POLYP [None]
  - SINUSITIS [None]
  - TUMOUR INVASION [None]
  - VASOGENIC CEREBRAL OEDEMA [None]
